FAERS Safety Report 15394417 (Version 3)
Quarter: 2018Q4

REPORT INFORMATION
  Report Type: Report from Study
  Country: None (occurrence: US)
  Receive Date: 20180918
  Receipt Date: 20181127
  Transmission Date: 20190204
  Serious: Yes (Hospitalization, Other)
  Sender: FDA-Public Use
  Company Number: US-ABBVIE-18S-163-2488731-00

PATIENT
  Sex: Female

DRUGS (1)
  1. DUOPA [Suspect]
     Active Substance: CARBIDOPA\LEVODOPA
     Indication: PARKINSON^S DISEASE
     Route: 050

REACTIONS (8)
  - Stoma site discharge [Unknown]
  - Intentional device misuse [Unknown]
  - Medical induction of coma [Unknown]
  - Stoma site infection [Not Recovered/Not Resolved]
  - Medical device pain [Unknown]
  - Pleural effusion [Unknown]
  - Pneumoperitoneum [Unknown]
  - Injury associated with device [Unknown]
